FAERS Safety Report 11645890 (Version 1)
Quarter: 2015Q4

REPORT INFORMATION
  Report Type: Spontaneous
  Country: US (occurrence: US)
  Receive Date: 20151020
  Receipt Date: 20151020
  Transmission Date: 20160304
  Serious: No
  Sender: FDA-Public Use
  Company Number: US-PFIZER INC-2015342912

PATIENT
  Age: 41 Year
  Sex: Female
  Weight: 61 kg

DRUGS (3)
  1. CORTISONE [Interacting]
     Active Substance: CORTISONE\HYDROCORTISONE
     Indication: PAIN
     Dates: start: 201508, end: 201508
  2. LYRICA [Suspect]
     Active Substance: PREGABALIN
     Indication: FIBROMYALGIA
     Dosage: 225 MG CAPSULE, 2X/DAY BY MOUTH
     Route: 048
     Dates: start: 201308
  3. LYRICA [Interacting]
     Active Substance: PREGABALIN
     Indication: ARTHRITIS

REACTIONS (8)
  - Product use issue [Unknown]
  - Arthralgia [Not Recovered/Not Resolved]
  - Back pain [Recovered/Resolved]
  - Musculoskeletal discomfort [Not Recovered/Not Resolved]
  - Joint crepitation [Recovered/Resolved]
  - Drug interaction [Unknown]
  - Injection site pain [Recovered/Resolved]
  - Musculoskeletal pain [Recovered/Resolved]

NARRATIVE: CASE EVENT DATE: 201508
